FAERS Safety Report 7802637-6 (Version None)
Quarter: 2011Q4

REPORT INFORMATION
  Report Type: 
  Country: None (occurrence: None)
  Receive Date: 20111007
  Receipt Date: 20110928
  Transmission Date: 20120403
  Serious: Yes (Hospitalization, Other)
  Sender: FDA-Public Use
  Company Number: PHHY2011JP77626

PATIENT
  Age: 73 Year
  Sex: Male

DRUGS (2)
  1. ZOMETA [Suspect]
     Indication: METASTASES TO BONE
     Dosage: 4 MG, EVERY FOUR WEEKS FOR SIX MONTHS
     Route: 041
     Dates: start: 20110101, end: 20110830
  2. GABAPENTIN [Concomitant]
     Route: 065

REACTIONS (12)
  - DIZZINESS [None]
  - NEOPLASM PROGRESSION [None]
  - PULMONARY HYPERTENSION [None]
  - PULMONARY VALVE INCOMPETENCE [None]
  - BRADYCARDIA [None]
  - MITRAL VALVE INCOMPETENCE [None]
  - TRICUSPID VALVE INCOMPETENCE [None]
  - VENTRICULAR EXTRASYSTOLES [None]
  - ATRIOVENTRICULAR BLOCK SECOND DEGREE [None]
  - NEOPLASM MALIGNANT [None]
  - EXTRASYSTOLES [None]
  - ATRIAL FIBRILLATION [None]
